FAERS Safety Report 19029239 (Version 3)
Quarter: 2021Q2

REPORT INFORMATION
  Report Type: Report from Study
  Country: CA (occurrence: CA)
  Receive Date: 20210318
  Receipt Date: 20210621
  Transmission Date: 20210717
  Serious: Yes (Other)
  Sender: FDA-Public Use
  Company Number: CA-TAKEDA-2021TUS004061

PATIENT
  Age: 54 Year
  Sex: Female

DRUGS (8)
  1. VEDOLIZUMAB [Suspect]
     Active Substance: VEDOLIZUMAB
     Dosage: 300 MILLIGRAM, Q4WEEKS
     Route: 042
  2. ZOPICLONE [Concomitant]
     Active Substance: ZOPICLONE
     Dosage: 7.5 MILLIGRAM, QD
  3. PENTASA [Suspect]
     Active Substance: MESALAMINE
     Indication: PRODUCT USED FOR UNKNOWN INDICATION
     Dosage: 500 MILLIGRAM, TID
     Route: 065
     Dates: start: 20201201
  4. VEDOLIZUMAB [Suspect]
     Active Substance: VEDOLIZUMAB
     Dosage: 300 MILLIGRAM, Q4WEEKS
     Route: 042
     Dates: start: 20210309
  5. PREDNISONE. [Concomitant]
     Active Substance: PREDNISONE
     Dosage: UNK
     Dates: start: 202011
  6. PALAFER [Suspect]
     Active Substance: FERROUS FUMARATE
     Indication: BLOOD IRON DECREASED
     Dosage: UNK
     Route: 065
     Dates: start: 20210215
  7. VEDOLIZUMAB [Suspect]
     Active Substance: VEDOLIZUMAB
     Indication: COLITIS ULCERATIVE
     Dosage: 300 MILLIGRAM
     Route: 042
     Dates: start: 20201214
  8. ATIVAN [Concomitant]
     Active Substance: LORAZEPAM
     Dosage: 0.5 MILLIGRAM

REACTIONS (7)
  - Blood iron decreased [Unknown]
  - Nausea [Unknown]
  - Drug ineffective [Unknown]
  - Off label use [Unknown]
  - Dyspepsia [Unknown]
  - Colitis ulcerative [Unknown]
  - Hunger [Unknown]

NARRATIVE: CASE EVENT DATE: 20210309
